FAERS Safety Report 19034162 (Version 1)
Quarter: 2021Q1

REPORT INFORMATION
  Report Type: Spontaneous
  Country: DE (occurrence: DE)
  Receive Date: 20210319
  Receipt Date: 20210319
  Transmission Date: 20210420
  Serious: Yes (Hospitalization)
  Sender: FDA-Public Use
  Company Number: DE-JNJFOC-20210326176

PATIENT
  Age: 15 Year
  Sex: Female
  Weight: 32 kg

DRUGS (7)
  1. L?THYROXIN [Concomitant]
     Active Substance: LEVOTHYROXINE SODIUM
     Indication: HYPOTHYROIDISM
     Dosage: DAILY DOSE: 37.5 MICROGRAM(S) EVERY DAYS
     Route: 048
     Dates: start: 20171124
  2. TOPAMAX [Suspect]
     Active Substance: TOPIRAMATE
     Indication: EPILEPSY
     Dosage: 50?0?75MG
     Route: 048
  3. DIAZEPAM. [Concomitant]
     Active Substance: DIAZEPAM
     Indication: EPILEPSY
     Dosage: AT EPILEPTIC FIT }3 MINUTES
     Route: 054
  4. OXCARBAZEPINA [Suspect]
     Active Substance: OXCARBAZEPINE
     Indication: EPILEPSY
     Dosage: 300?0?600MG
     Route: 048
     Dates: start: 20150316
  5. KEPPRA [Suspect]
     Active Substance: LEVETIRACETAM
     Indication: EPILEPSY
     Dosage: 0,8?0?1G
     Route: 048
     Dates: start: 20150316
  6. L?ARGININ POWDER [Concomitant]
     Dosage: DAILY DOSE: 6 G GRAM(S) EVERY DAYS 3 SEPARATED DOSES
     Route: 048
  7. COENZYM Q10 [Concomitant]
     Indication: MELAS SYNDROME
     Dosage: DAILY DOSE: 300 MG MILLGRAM(S) EVERY DAYS 3 SEPARATED DOSES
     Route: 048
     Dates: start: 20150409

REACTIONS (4)
  - Paraesthesia [Unknown]
  - Blood osmolarity decreased [Unknown]
  - Headache [Unknown]
  - Hyponatraemia [Unknown]

NARRATIVE: CASE EVENT DATE: 20180725
